FAERS Safety Report 8132638-2 (Version None)
Quarter: 2012Q1

REPORT INFORMATION
  Report Type: 
  Country: None (occurrence: None)
  Receive Date: 20120213
  Receipt Date: 20120209
  Transmission Date: 20120608
  Serious: Yes (Death)
  Sender: FDA-Public Use
  Company Number: US-GLAXOSMITHKLINE-B0721744A

PATIENT
  Age: 75 Year
  Sex: Male
  Weight: 110 kg

DRUGS (9)
  1. ATENOLOL [Concomitant]
  2. LISINOPRIL [Concomitant]
  3. LEVOXYL [Concomitant]
  4. INDAPAMIDE [Concomitant]
  5. JANUVIA [Concomitant]
  6. TESTOSTERONE [Concomitant]
  7. LIPITOR [Concomitant]
  8. GLUCOTROL [Concomitant]
  9. AVANDIA [Suspect]
     Indication: DIABETES MELLITUS
     Dosage: 4MG PER DAY
     Route: 048
     Dates: start: 20060223, end: 20091123

REACTIONS (2)
  - MYOCARDIAL INFARCTION [None]
  - CARDIOVASCULAR DISORDER [None]
